FAERS Safety Report 6451228-0 (Version None)
Quarter: 2009Q4

REPORT INFORMATION
  Report Type: 
  Country: None (occurrence: None)
  Receive Date: 20091123
  Receipt Date: 20091028
  Transmission Date: 20100525
  Serious: Yes (Hospitalization)
  Sender: FDA-Public Use
  Company Number: US-AMGEN-QUU368364

PATIENT
  Sex: Male

DRUGS (2)
  1. ENBREL [Suspect]
     Indication: PSORIATIC ARTHROPATHY
     Route: 058
     Dates: start: 20041012
  2. ENBREL [Suspect]
     Indication: PSORIASIS

REACTIONS (4)
  - CONVULSION [None]
  - INFLUENZA [None]
  - NASOPHARYNGITIS [None]
  - NEPHROLITHIASIS [None]
